FAERS Safety Report 9688821 (Version 2)
Quarter: 2013Q4

REPORT INFORMATION
  Report Type: Spontaneous
  Country: US (occurrence: None)
  Receive Date: 20131113
  Receipt Date: 20131223
  Transmission Date: 20140711
  Serious: Yes (Death, Other)
  Sender: FDA-Public Use
  Company Number: 1996931

PATIENT
  Sex: Female

DRUGS (2)
  1. PHENYTOIN SODIUM [Suspect]
     Indication: CONVULSION PROPHYLAXIS
     Dosage: NOT REPORTED, NOT REPORTED, UNKNOWN, INTRAVENOUS (NOT OTHERWISE SPECIFIED)
     Route: 042
  2. PHENYTOIN [Suspect]
     Indication: CONVULSION PROPHYLAXIS
     Route: 048

REACTIONS (12)
  - Adverse drug reaction [None]
  - Rash [None]
  - Urticaria [None]
  - Renal failure [None]
  - Mental impairment [None]
  - Unresponsive to stimuli [None]
  - Haemorrhage [None]
  - Skin exfoliation [None]
  - Hypersensitivity [None]
  - Pruritus [None]
  - Blister [None]
  - Drug prescribing error [None]
